FAERS Safety Report 9052915 (Version 2)
Quarter: 2013Q1

REPORT INFORMATION
  Report Type: Spontaneous
  Country: GR (occurrence: GR)
  Receive Date: 20130207
  Receipt Date: 20130208
  Transmission Date: 20140127
  Serious: Yes (Hospitalization)
  Sender: FDA-Public Use
  Company Number: PHHY2013GR011111

PATIENT
  Age: 24 Year
  Sex: Male

DRUGS (2)
  1. VALPROIC ACID [Suspect]
     Indication: EPILEPSY
  2. RISPERIDONE [Interacting]
     Indication: PSYCHOMOTOR RETARDATION

REACTIONS (5)
  - Lupus-like syndrome [Unknown]
  - Pleural effusion [Recovered/Resolved]
  - Pyrexia [Recovered/Resolved]
  - Hypoventilation [Recovered/Resolved]
  - Drug interaction [Unknown]
